FAERS Safety Report 25254386 (Version 1)
Quarter: 2025Q2

REPORT INFORMATION
  Report Type: Spontaneous
  Country: BE (occurrence: BE)
  Receive Date: 20250430
  Receipt Date: 20250430
  Transmission Date: 20250717
  Serious: Yes (Other)
  Sender: ALKEM
  Company Number: BE-ALKEM LABORATORIES LIMITED-BE-ALKEM-2025-04312

PATIENT
  Age: 84 Year
  Sex: Male

DRUGS (2)
  1. ERYTHROMYCIN [Interacting]
     Active Substance: ERYTHROMYCIN
     Indication: Product used for unknown indication
     Dosage: 750 MILLIGRAM, QD
     Route: 065
  2. EDOXABAN [Interacting]
     Active Substance: EDOXABAN
     Indication: Atrial fibrillation
     Route: 048

REACTIONS (2)
  - Haemoglobin decreased [Unknown]
  - Drug interaction [Unknown]
